FAERS Safety Report 8321660 (Version 3)
Quarter: 2012Q4

REPORT INFORMATION
  Report Type: 
  Country: US (occurrence: US)
  Receive Date: 20120104
  Receipt Date: 20120911
  Transmission Date: 20130627
  Serious: Yes (Hospitalization)
  Sender: FDA-Public Use
  Company Number: US-VIROPHARMA INCORPORATED-20111212CINRY2509

PATIENT
  Age: 31 None
  Sex: Female

DRUGS (2)
  1. CINRYZE (C1 ESTERASE INHIBITOR (HUMAN)) [Suspect]
     Indication: HEREDITARY ANGIOEDEMA
     Dates: start: 2010
  2. BERINERT (C1 ESTERASE INHIBITOR (HUMAN)) [Concomitant]
     Indication: HEREDITARY ANGIOEDEMA
     Dosage: unknown
     Route: 065
     Dates: start: 201112

REACTIONS (5)
  - Abortion spontaneous [Recovered/Resolved]
  - Cervical incompetence [Unknown]
  - Hereditary angioedema [Recovered/Resolved]
  - Exposure during pregnancy [Recovered/Resolved]
  - Drug dose omission [Recovered/Resolved]
